FAERS Safety Report 25223342 (Version 1)
Quarter: 2025Q2

REPORT INFORMATION
  Report Type: Spontaneous
  Country: US (occurrence: US)
  Receive Date: 20250422
  Receipt Date: 20250422
  Transmission Date: 20250716
  Serious: No
  Sender: BAUSCH AND LOMB
  Company Number: US-BAUSCHBL-2025BNL006580

PATIENT
  Age: 41 Year
  Sex: Female

DRUGS (2)
  1. BENOXINATE HYDROCHLORIDE\FLUORESCEIN SODIUM [Suspect]
     Active Substance: BENOXINATE HYDROCHLORIDE\FLUORESCEIN SODIUM
     Indication: Glaucoma
     Route: 065
     Dates: start: 20250410, end: 20250410
  2. TROPICAMIDE [Concomitant]
     Active Substance: TROPICAMIDE
     Indication: Product used for unknown indication
     Route: 065

REACTIONS (8)
  - Drug hypersensitivity [Unknown]
  - Headache [Unknown]
  - Influenza like illness [Unknown]
  - Nausea [Unknown]
  - Dizziness [Unknown]
  - Chest discomfort [Unknown]
  - Secretion discharge [Not Recovered/Not Resolved]
  - Eye irritation [Unknown]

NARRATIVE: CASE EVENT DATE: 20250410
